FAERS Safety Report 8971526 (Version 3)
Quarter: 2014Q2

REPORT INFORMATION
  Report Type: Spontaneous
  Country: JP (occurrence: JP)
  Receive Date: 20121218
  Receipt Date: 20140416
  Transmission Date: 20141212
  Serious: Yes (Other)
  Sender: FDA-Public Use
  Company Number: PHHY2012JP116211

PATIENT
  Age: 84 Year
  Sex: Male

DRUGS (4)
  1. TASIGNA [Suspect]
     Indication: CHRONIC MYELOID LEUKAEMIA
     Dosage: 400 MG, DAILY
     Route: 048
     Dates: start: 20110121
  2. TASIGNA [Suspect]
     Dosage: 200 MG, DAILY
     Route: 048
  3. TASIGNA [Suspect]
     Dosage: 200 MG, DAILY
     Route: 048
     Dates: start: 20110701
  4. TASIGNA [Suspect]
     Route: 048
     Dates: start: 20111020

REACTIONS (2)
  - Electrocardiogram QT prolonged [Unknown]
  - Blood creatinine increased [Unknown]
